FAERS Safety Report 13108743 (Version 2)
Quarter: 2017Q1

REPORT INFORMATION
  Report Type: Spontaneous
  Country: FR (occurrence: FR)
  Receive Date: 20170112
  Receipt Date: 20170206
  Transmission Date: 20170428
  Serious: Yes (Hospitalization, Other)
  Sender: FDA-Public Use
  Company Number: FR-PFIZER INC-2017003366

PATIENT
  Age: 75 Year
  Sex: Female

DRUGS (8)
  1. ARACYTINE [Suspect]
     Active Substance: CYTARABINE
     Dosage: 40 MG, CYCLIC
     Route: 037
     Dates: start: 20161226, end: 20161226
  2. ETOPOSIDE MYLAN [Suspect]
     Active Substance: ETOPOSIDE
     Dosage: 150 MG, CYCLIC
     Route: 042
     Dates: start: 20161226, end: 20161226
  3. DEPO-MEDROL [Suspect]
     Active Substance: METHYLPREDNISOLONE ACETATE
     Dosage: 40 MG, CYCLIC
     Route: 037
     Dates: start: 20161226, end: 20161226
  4. MABTHERA [Suspect]
     Active Substance: RITUXIMAB
     Dosage: 590 MG, CYCLIC
     Route: 042
     Dates: start: 20161226, end: 20161227
  5. ENDOXAN [Suspect]
     Active Substance: CYCLOPHOSPHAMIDE
     Dosage: UNK
  6. DOXORUBICIN TEVA [Suspect]
     Active Substance: DOXORUBICIN
     Dosage: 80 MG, CYCLIC
     Route: 042
     Dates: start: 20161226, end: 20161226
  7. ENDOXAN [Suspect]
     Active Substance: CYCLOPHOSPHAMIDE
     Dosage: 1200 MG, CYCLIC
     Route: 042
     Dates: start: 20161226, end: 20161226
  8. METHOTREXATE BIODIM [Suspect]
     Active Substance: METHOTREXATE
     Dosage: 15 MG, CYCLIC
     Route: 037
     Dates: start: 20161226, end: 20161226

REACTIONS (6)
  - Rash [Recovered/Resolved]
  - Oedema [Recovered/Resolved]
  - Pyrexia [Recovered/Resolved]
  - Headache [Recovered/Resolved]
  - Conjunctivitis [Recovered/Resolved]
  - Nausea [Recovered/Resolved]

NARRATIVE: CASE EVENT DATE: 20161227
